FAERS Safety Report 10355606 (Version 2)
Quarter: 2014Q3

REPORT INFORMATION
  Report Type: Spontaneous
  Country: US (occurrence: US)
  Receive Date: 20140731
  Receipt Date: 20140731
  Transmission Date: 20150326
  Serious: Yes (Disabling)
  Sender: FDA-Public Use
  Company Number: US-ABBVIE-14P-163-1213952-00

PATIENT
  Age: 74 Year
  Sex: Male
  Weight: 154 kg

DRUGS (2)
  1. ANDROGEL [Suspect]
     Active Substance: TESTOSTERONE
     Indication: HYPOGONADISM
  2. ANDROGEL [Suspect]
     Active Substance: TESTOSTERONE
     Indication: BLOOD TESTOSTERONE DECREASED
     Dosage: 2-3 PUMPS
     Route: 062
     Dates: start: 20131213, end: 20140304

REACTIONS (6)
  - Oedema peripheral [Unknown]
  - Mitral valve prolapse [Unknown]
  - Tricuspid valve incompetence [Unknown]
  - Myalgia [Not Recovered/Not Resolved]
  - Mitral valve incompetence [Unknown]
  - Pulmonary valve incompetence [Unknown]

NARRATIVE: CASE EVENT DATE: 20140218
